FAERS Safety Report 6653864-5 (Version None)
Quarter: 2010Q1

REPORT INFORMATION
  Report Type: 
  Country: None (occurrence: None)
  Receive Date: 20100326
  Receipt Date: 20100314
  Transmission Date: 20100710
  Serious: Yes (Other)
  Sender: FDA-Public Use
  Company Number: US-PFIZER INC-2010034189

PATIENT
  Sex: Male
  Weight: 65.76 kg

DRUGS (11)
  1. CHANTIX [Suspect]
     Indication: SMOKING CESSATION THERAPY
     Dosage: 0.5 MG, 1X/DAY
     Route: 048
     Dates: start: 20100202, end: 20100301
  2. SPIRIVA [Suspect]
     Indication: CHRONIC OBSTRUCTIVE PULMONARY DISEASE
     Dosage: 18 UG, 1X/DAY
     Dates: start: 20100201, end: 20100312
  3. MEDROL [Suspect]
     Indication: RASH
     Dosage: UNK
     Route: 048
     Dates: start: 20100101
  4. ATENOLOL [Concomitant]
     Indication: HYPERTENSION
     Dosage: 25 MG, 1X/DAY
  5. MONOPRIL [Concomitant]
     Indication: HYPERTENSION
     Dosage: 140 MG, 1X/DAY
     Route: 048
  6. LYRICA [Concomitant]
     Indication: NEUROPATHY PERIPHERAL
     Dosage: 225 MG, 2X/DAY
     Route: 048
  7. ADVAIR DISKUS 100/50 [Concomitant]
     Indication: CHRONIC OBSTRUCTIVE PULMONARY DISEASE
     Dosage: 250 UG, 2X/DAY
     Route: 055
  8. PROVENTIL /OLD FORM/ [Concomitant]
     Indication: CHRONIC OBSTRUCTIVE PULMONARY DISEASE
     Dosage: UNK
     Route: 055
  9. CLONAZEPAM [Concomitant]
     Indication: ANXIETY
     Dosage: 1.5 MG, 2X/DAY
     Route: 048
  10. PRAVACHOL [Concomitant]
     Indication: BLOOD CHOLESTEROL INCREASED
     Dosage: 20 MG, 1X/DAY
     Route: 048
  11. TRAZODONE [Concomitant]
     Dosage: UNK
     Route: 048

REACTIONS (6)
  - DRUG INEFFECTIVE [None]
  - DYSPNOEA [None]
  - RASH [None]
  - SKIN EXFOLIATION [None]
  - SWOLLEN TONGUE [None]
  - URTICARIA [None]
